FAERS Safety Report 7057127-8 (Version None)
Quarter: 2010Q4

REPORT INFORMATION
  Report Type: 
  Country: None (occurrence: None)
  Receive Date: 20101022
  Receipt Date: 20101008
  Transmission Date: 20110411
  Serious: Yes (Death, Other)
  Sender: FDA-Public Use
  Company Number: PHHY2008JP25929

PATIENT
  Sex: Male

DRUGS (9)
  1. EXJADE [Suspect]
     Indication: IRON OVERLOAD
     Dosage: 500MG
     Route: 048
     Dates: start: 20080728, end: 20080822
  2. EXJADE [Suspect]
     Dosage: 250MG
     Route: 048
     Dates: start: 20080908, end: 20080911
  3. EXJADE [Suspect]
     Dosage: 375MG
     Route: 048
     Dates: start: 20080912, end: 20080923
  4. PREDNISOLONE [Concomitant]
     Indication: MYELOPROLIFERATIVE DISORDER
     Dosage: 5MG
     Route: 048
     Dates: start: 20080728, end: 20080911
  5. PARIET [Concomitant]
     Dosage: 10MG
     Route: 048
     Dates: start: 20080728, end: 20080911
  6. HYDREA [Concomitant]
     Indication: MYELOPROLIFERATIVE DISORDER
     Dosage: 1000MG
     Route: 048
     Dates: start: 20080728, end: 20080911
  7. TAMSULOSIN HCL [Concomitant]
     Indication: MYELOPROLIFERATIVE DISORDER
     Dosage: 0.2MG
     Route: 048
     Dates: start: 20080728, end: 20080911
  8. PRIMPERAN [Concomitant]
     Indication: MYELOPROLIFERATIVE DISORDER
     Dosage: 5MG
     Route: 048
     Dates: start: 20080908, end: 20080919
  9. JUVELA NICOTINATE [Concomitant]
     Indication: MYELOPROLIFERATIVE DISORDER
     Dosage: 600MG
     Route: 048
     Dates: start: 20080728, end: 20080911

REACTIONS (6)
  - BLAST CELL COUNT INCREASED [None]
  - DIARRHOEA [None]
  - DISSEMINATED INTRAVASCULAR COAGULATION [None]
  - DRUG INEFFECTIVE [None]
  - MALIGNANT NEOPLASM PROGRESSION [None]
  - RESPIRATORY FAILURE [None]
